FAERS Safety Report 4398193-8 (Version None)
Quarter: 2004Q3

REPORT INFORMATION
  Report Type: 
  Country: None (occurrence: None)
  Receive Date: 20040713
  Receipt Date: 20040629
  Transmission Date: 20050211
  Serious: Yes (Death, Life-Threatening, Other)
  Sender: FDA-Public Use
  Company Number: EMADSS2003003780

PATIENT
  Age: 60 Year
  Sex: Female

DRUGS (2)
  1. REMICADE [Suspect]
     Indication: RHEUMATOID ARTHRITIS
     Dosage: 1 IN 1 AS NECESSARY, INTRAVENTOUS DRIP
     Route: 041
     Dates: start: 20020326, end: 20020326
  2. AZATHIOPRINE [Concomitant]

REACTIONS (2)
  - ALVEOLITIS [None]
  - PNEUMONIA [None]
